FAERS Safety Report 9915612 (Version 1)
Quarter: 2014Q1

REPORT INFORMATION
  Report Type: Spontaneous
  Country: US (occurrence: None)
  Receive Date: 20140219
  Receipt Date: 20140219
  Transmission Date: 20141002
  Serious: Yes (Hospitalization)
  Sender: FDA-Public Use
  Company Number: None

PATIENT
  Sex: 0

DRUGS (3)
  1. ANDROGEL [Suspect]
     Indication: BLOOD TESTOSTERONE DECREASED
     Dosage: APPLIED TO A SURFACE, USUALLY THE SKIN
  2. ANDROGEL [Suspect]
     Indication: EMOTIONAL DISORDER
     Dosage: APPLIED TO A SURFACE, USUALLY THE SKIN
  3. CYPIONATE TESTOSTERONE [Suspect]
     Indication: BLOOD TESTOSTERONE DECREASED

REACTIONS (1)
  - Thrombosis [None]
